FAERS Safety Report 9393861 (Version 1)
Quarter: 2013Q3

REPORT INFORMATION
  Report Type: Spontaneous
  Country: US (occurrence: US)
  Receive Date: 20130710
  Receipt Date: 20130710
  Transmission Date: 20140515
  Serious: No
  Sender: FDA-Public Use
  Company Number: US-B.I. PHARMACEUTICALS,INC./RIDGEFIELD-2013-BI-19021BP

PATIENT
  Sex: Female
  Weight: 67.13 kg

DRUGS (9)
  1. COMBIVENT [Suspect]
     Dosage: STRENGTH: 103 MCG/18 MCG DAILY DOSE: 2 PUFF 4 TIMES DAILY
     Route: 055
     Dates: start: 201106
  2. NORVASC [Suspect]
     Dosage: 10 MG
     Route: 048
  3. NORVASC [Suspect]
     Dosage: 5 MG
  4. LYRICA [Suspect]
     Dosage: 200 MG
     Route: 048
  5. NAPROXEN [Concomitant]
     Dosage: 1000 MG
     Route: 048
  6. SYMBICORT [Concomitant]
     Dosage: 2 PUF
  7. PROAIR HFA [Concomitant]
     Dosage: 2 PUFFS EVERY 6 HOURS
  8. FLEXERIL [Concomitant]
     Dosage: DAILY DOSE: 1 TAB. AT BED TIME
     Route: 048
  9. TRAMADOL HCL [Concomitant]
     Dosage: DAILY DOSE: 1-2 TABS FOUR TIMES
     Route: 048

REACTIONS (4)
  - Oedema peripheral [Unknown]
  - Hyperlipidaemia [Unknown]
  - Chronic obstructive pulmonary disease [Unknown]
  - Depression [Unknown]
